FAERS Safety Report 20670743 (Version 2)
Quarter: 2022Q2

REPORT INFORMATION
  Report Type: Spontaneous
  Country: US (occurrence: US)
  Receive Date: 20220404
  Receipt Date: 20220622
  Transmission Date: 20220721
  Serious: Yes (Hospitalization, Other)
  Sender: FDA-Public Use
  Company Number: US-BRISTOL-MYERS SQUIBB COMPANY-2022-012214

PATIENT
  Age: 6 Year
  Sex: Female
  Weight: 51 kg

DRUGS (1)
  1. THALOMID [Suspect]
     Active Substance: THALIDOMIDE
     Indication: Brain neoplasm malignant
     Route: 048
     Dates: start: 20220214

REACTIONS (3)
  - Seizure [Recovering/Resolving]
  - Febrile infection [Recovering/Resolving]
  - Intentional product use issue [Unknown]

NARRATIVE: CASE EVENT DATE: 20220320
